FAERS Safety Report 24375313 (Version 1)
Quarter: 2024Q3

REPORT INFORMATION
  Report Type: Spontaneous
  Country: JP (occurrence: JP)
  Receive Date: 20240928
  Receipt Date: 20240928
  Transmission Date: 20241017
  Serious: Yes (Other)
  Sender: ROCHE
  Company Number: JP-CHUGAI-2024032723

PATIENT
  Age: 73 Year
  Sex: Female

DRUGS (1)
  1. ACTEMRA [Suspect]
     Active Substance: TOCILIZUMAB
     Indication: Rheumatoid arthritis
     Dosage: UNK
     Route: 065

REACTIONS (7)
  - Device dislocation [Unknown]
  - Intervertebral discitis [Recovering/Resolving]
  - Sepsis [Recovering/Resolving]
  - Psoas abscess [Unknown]
  - Staphylococcal infection [Unknown]
  - Arthritis infective [Unknown]
  - Staphylococcal infection [Recovering/Resolving]
